FAERS Safety Report 15699486 (Version 1)
Quarter: 2018Q4

REPORT INFORMATION
  Report Type: Spontaneous
  Country: DK (occurrence: DK)
  Receive Date: 20181207
  Receipt Date: 20181207
  Transmission Date: 20190205
  Serious: Yes (Life-Threatening, Other)
  Sender: FDA-Public Use
  Company Number: PHHY2018DK176061

PATIENT
  Age: 80 Year
  Sex: Female

DRUGS (5)
  1. MARCOUMAR [Interacting]
     Active Substance: PHENPROCOUMON
     Indication: ATRIAL FIBRILLATION
     Dosage: 1.5 MG, UNK
     Route: 048
  2. DICLOFENAC [Suspect]
     Active Substance: DICLOFENAC
     Indication: PRODUCT USED FOR UNKNOWN INDICATION
     Dosage: 50 MG, UNK
     Route: 048
     Dates: start: 20050506, end: 20050522
  3. NAXOGIN [Interacting]
     Active Substance: NIMORAZOLE
     Indication: HYPOPHARYNGEAL CANCER
     Dosage: 1500 MG, UNK (THERAPY GIVE 1.5 HRS PRIOR EACH RADIOTHERAPY FRACTION)
     Route: 048
     Dates: start: 20050504, end: 20050610
  4. MARCOUMAR [Interacting]
     Active Substance: PHENPROCOUMON
     Dosage: 1.5 MG, QW3
     Route: 048
     Dates: start: 1988
  5. DIFLUCAN [Concomitant]
     Active Substance: FLUCONAZOLE
     Indication: ILL-DEFINED DISORDER
     Dosage: 50 MG, UNK
     Route: 048
     Dates: start: 20050516, end: 20050607

REACTIONS (5)
  - International normalised ratio increased [Unknown]
  - Gastrointestinal haemorrhage [Recovered/Resolved]
  - Haematemesis [Recovered/Resolved]
  - Drug interaction [Recovered/Resolved]
  - Haemoglobin decreased [Recovered/Resolved]

NARRATIVE: CASE EVENT DATE: 2005
